FAERS Safety Report 8234769-5 (Version None)
Quarter: 2012Q1

REPORT INFORMATION
  Report Type: 
  Country: None (occurrence: None)
  Receive Date: 20120322
  Receipt Date: 20120308
  Transmission Date: 20120608
  Serious: Yes (Hospitalization)
  Sender: FDA-Public Use
  Company Number: TPA2012A00830

PATIENT
  Age: 80 Year
  Sex: Male

DRUGS (2)
  1. ADENURIC (FEBUXOSTAT) [Suspect]
     Indication: GOUT
     Dosage: 80 MG (80 MG, 1  IN 1 D)
     Route: 048
     Dates: start: 20111001, end: 20120206
  2. VALSARTAN  AND HYDROCHLOROTHIAZIDE [Suspect]
     Indication: HYPERTENSION
     Dosage: 160 MG + 12.5 MG (1 IN 1 D)
     Route: 048
     Dates: start: 20120130, end: 20120206

REACTIONS (3)
  - VASCULITIS NECROTISING [None]
  - RASH GENERALISED [None]
  - SKIN NECROSIS [None]
